FAERS Safety Report 6655157-9 (Version None)
Quarter: 2010Q1

REPORT INFORMATION
  Report Type: 
  Country: None (occurrence: None)
  Receive Date: 20100329
  Receipt Date: 20100317
  Transmission Date: 20100710
  Serious: Yes (Other)
  Sender: FDA-Public Use
  Company Number: US-BAYER-201011814NA

PATIENT
  Age: 9 Year
  Sex: Male

DRUGS (3)
  1. KOGENATE FS [Suspect]
     Indication: FACTOR VIII DEFICIENCY
     Dosage: TOTAL DAILY DOSE: 2000 U
     Route: 042
     Dates: start: 20070101
  2. MULTI-VITAMINS [Concomitant]
  3. TYLENOL-500 [Concomitant]

REACTIONS (1)
  - WEIGHT INCREASED [None]
